FAERS Safety Report 22288872 (Version 2)
Quarter: 2023Q2

REPORT INFORMATION
  Report Type: Spontaneous
  Country: US (occurrence: US)
  Receive Date: 20230505
  Receipt Date: 20230619
  Transmission Date: 20230721
  Serious: Yes (Hospitalization)
  Sender: FDA-Public Use
  Company Number: US-Indivior Limited-INDV-139177-2023

PATIENT

DRUGS (2)
  1. PERSERIS [Suspect]
     Active Substance: RISPERIDONE
     Indication: Schizophrenia
     Dosage: 90 MILLIGRAM, QMO
     Route: 065
  2. PERSERIS [Suspect]
     Active Substance: RISPERIDONE

REACTIONS (2)
  - Hospitalisation [Not Recovered/Not Resolved]
  - Incorrect route of product administration [Recovered/Resolved]

NARRATIVE: CASE EVENT DATE: 20230413
